FAERS Safety Report 11707528 (Version 1)
Quarter: 2015Q4

REPORT INFORMATION
  Report Type: Spontaneous
  Country: US (occurrence: US)
  Receive Date: 20151106
  Receipt Date: 20151106
  Transmission Date: 20160304
  Serious: No
  Sender: FDA-Public Use
  Company Number: US-009507513-1511USA003174

PATIENT
  Age: 22 Year
  Sex: Female
  Weight: 86.17 kg

DRUGS (1)
  1. NEXPLANON [Suspect]
     Active Substance: ETONOGESTREL
     Indication: CONTRACEPTION
     Dosage: DOSE/FREQUENCY REPORTED AS:1 IMPLANT/3 YEARS, IN HER LEFT ARM
     Route: 059
     Dates: start: 20151103

REACTIONS (3)
  - Implant site bruising [Unknown]
  - Erythema [Unknown]
  - Implant site pain [Unknown]

NARRATIVE: CASE EVENT DATE: 20151104
